FAERS Safety Report 13423610 (Version 2)
Quarter: 2017Q2

REPORT INFORMATION
  Report Type: Spontaneous
  Country: JP (occurrence: JP)
  Receive Date: 20170410
  Receipt Date: 20170421
  Transmission Date: 20170830
  Serious: Yes (Other)
  Sender: FDA-Public Use
  Company Number: JP-ASTRAZENECA-2017SE37355

PATIENT

DRUGS (1)
  1. BLOPRESS [Suspect]
     Active Substance: CANDESARTAN CILEXETIL
     Indication: HYPERTENSION
     Dosage: UNKNOWN
     Route: 064

REACTIONS (3)
  - Renal impairment [Unknown]
  - Nephropathy [Unknown]
  - Chronic kidney disease [Unknown]
